FAERS Safety Report 21835983 (Version 4)
Quarter: 2024Q1

REPORT INFORMATION
  Report Type: Spontaneous
  Country: CA (occurrence: CA)
  Receive Date: 20230109
  Receipt Date: 20240305
  Transmission Date: 20240410
  Serious: Yes (Hospitalization, Other)
  Sender: FDA-Public Use
  Company Number: CA-MLMSERVICE-20221222-4000247-1

PATIENT
  Age: 70 Year
  Sex: Male

DRUGS (21)
  1. IRINOTECAN HYDROCHLORIDE [Suspect]
     Active Substance: IRINOTECAN HYDROCHLORIDE
     Indication: Panniculitis
     Dosage: 120 MILLIGRAM/SQ. METER, CYCLICAL (120 MG/M2 EVERY 2-WK, 1320 MILLIGRAM/SQ. METER 11 CYCLE)
     Route: 042
  2. IRINOTECAN HYDROCHLORIDE [Suspect]
     Active Substance: IRINOTECAN HYDROCHLORIDE
     Indication: Metastases to liver
     Dosage: 1320 MILLIGRAM/SQ. METER, CYCLICAL
     Route: 065
  3. IRINOTECAN HYDROCHLORIDE [Suspect]
     Active Substance: IRINOTECAN HYDROCHLORIDE
     Indication: Acinar cell carcinoma of pancreas
     Dosage: UNK
     Route: 065
  4. OXALIPLATIN [Suspect]
     Active Substance: OXALIPLATIN
     Indication: Panniculitis
     Dosage: 65 MILLIGRAM/SQ. METER, CYCLICAL (65 65 MG/M2 EVERY 2-WK , 715 MILLIGRAM/SQ. METER 11 CYCLE)
     Route: 042
  5. OXALIPLATIN [Suspect]
     Active Substance: OXALIPLATIN
     Indication: Acinar cell carcinoma of pancreas
     Dosage: 715 MILLIGRAM/SQ. METER, CYCLICAL
     Route: 065
  6. OXALIPLATIN [Suspect]
     Active Substance: OXALIPLATIN
     Indication: Metastases to liver
     Dosage: UNK
     Route: 065
  7. DEXAMETHASONE [Suspect]
     Active Substance: DEXAMETHASONE
     Indication: Product used for unknown indication
     Dosage: UNK
     Route: 065
  8. LEUCOVORIN [Suspect]
     Active Substance: LEUCOVORIN\LEUCOVORIN CALCIUM
     Indication: Panniculitis
     Dosage: 400 MILLIGRAM/SQ. METER, CYCLICAL (400 MG/M2 EVERY 2-WK, 4400 MILLIGRAM/SQ. METER 11 CYCLE)
     Route: 042
  9. LEUCOVORIN [Suspect]
     Active Substance: LEUCOVORIN\LEUCOVORIN CALCIUM
     Indication: Metastases to liver
     Dosage: UNK
     Route: 065
  10. LEUCOVORIN [Suspect]
     Active Substance: LEUCOVORIN\LEUCOVORIN CALCIUM
     Indication: Acinar cell carcinoma of pancreas
     Dosage: UNK
     Route: 065
  11. FLUOROURACIL [Suspect]
     Active Substance: FLUOROURACIL
     Indication: Acinar cell carcinoma of pancreas
     Dosage: 4200 MILLIGRAM/SQ. METER, CYCLICAL (4200 MG/M2 EVERY 2-WK, 46200 MILLIGRAM/SQ. METER 11 CYCLE)
     Route: 042
  12. FLUOROURACIL [Suspect]
     Active Substance: FLUOROURACIL
     Indication: Metastases to liver
     Dosage: 46200 MILLIGRAM/SQ. METER, CYCLICAL
     Route: 065
  13. FLUOROURACIL [Suspect]
     Active Substance: FLUOROURACIL
     Indication: Panniculitis
     Dosage: UNK
     Route: 065
  14. OLAPARIB [Suspect]
     Active Substance: OLAPARIB
     Indication: Acinar cell carcinoma of pancreas
     Dosage: 150 MILLIGRAM, TWO TIMES A DAY
     Route: 065
  15. NAPROXEN [Concomitant]
     Active Substance: NAPROXEN
     Indication: Gout
     Dosage: UNK
     Route: 065
  16. NAPROXEN [Concomitant]
     Active Substance: NAPROXEN
     Indication: Seronegative arthritis
  17. NAPROXEN [Concomitant]
     Active Substance: NAPROXEN
     Indication: Arthritis
  18. PREDNISOLONE [Concomitant]
     Active Substance: PREDNISOLONE
     Indication: Arthritis
     Dosage: UNK (TAPERING DOSE)
     Route: 065
  19. PREDNISOLONE [Concomitant]
     Active Substance: PREDNISOLONE
     Indication: Gout
     Dosage: 15 MILLIGRAM
     Route: 065
  20. PREDNISOLONE [Concomitant]
     Active Substance: PREDNISOLONE
     Indication: Seronegative arthritis
     Dosage: UNK
     Route: 065
     Dates: start: 2021
  21. PREDNISOLONE [Concomitant]
     Active Substance: PREDNISOLONE
     Dosage: 15 MILLIGRAM, ONCE A DAY
     Route: 065

REACTIONS (4)
  - Fatigue [Unknown]
  - Substance-induced psychotic disorder [Unknown]
  - Peripheral sensory neuropathy [Recovered/Resolved]
  - Neurotoxicity [Unknown]
